FAERS Safety Report 5240633-6 (Version None)
Quarter: 2007Q1

REPORT INFORMATION
  Report Type: 
  Country: None (occurrence: None)
  Receive Date: 20070219
  Receipt Date: 20070206
  Transmission Date: 20070707
  Serious: Yes (Other)
  Sender: FDA-Public Use
  Company Number: US-MERCK-0612USA02518

PATIENT
  Age: 79 Year
  Sex: Female

DRUGS (3)
  1. COSOPT [Suspect]
     Indication: GLAUCOMA
     Route: 047
     Dates: start: 20051214, end: 20061204
  2. COSOPT [Suspect]
     Route: 047
     Dates: start: 20051214, end: 20061204
  3. XALATAN [Concomitant]
     Route: 065

REACTIONS (1)
  - INTRAOCULAR PRESSURE INCREASED [None]
